FAERS Safety Report 14663595 (Version 2)
Quarter: 2018Q2

REPORT INFORMATION
  Report Type: Spontaneous
  Country: US (occurrence: US)
  Receive Date: 20180321
  Receipt Date: 20180422
  Transmission Date: 20180711
  Serious: Yes (Hospitalization)
  Sender: FDA-Public Use
  Company Number: US-APOTEX-2018AP008673

PATIENT
  Age: 60 Year
  Sex: Male

DRUGS (2)
  1. RISPERIDONE. [Suspect]
     Active Substance: RISPERIDONE
     Indication: POST-ANOXIC MYOCLONUS
     Route: 065
  2. ROPINIROLE. [Suspect]
     Active Substance: ROPINIROLE
     Indication: POST-ANOXIC MYOCLONUS
     Route: 065

REACTIONS (4)
  - Hyperkinesia [Recovering/Resolving]
  - Nausea [Unknown]
  - Condition aggravated [Recovering/Resolving]
  - Drug effect incomplete [Unknown]
